FAERS Safety Report 4301009-9 (Version None)
Quarter: 2004Q1

REPORT INFORMATION
  Report Type: 
  Country: None (occurrence: None)
  Receive Date: 20040219
  Receipt Date: 20040210
  Transmission Date: 20041129
  Serious: Yes (Hospitalization)
  Sender: FDA-Public Use
  Company Number: 2004-02-0855

PATIENT
  Age: 27 Year
  Sex: Male

DRUGS (1)
  1. DIPROSPAN INJECTABLE SUSPENSION (BETAMETHASONE SODIUM PHOSPHATE/DIPROP [Suspect]
     Indication: BURSITIS

REACTIONS (1)
  - ANAPHYLACTIC SHOCK [None]
